FAERS Safety Report 6956499-X (Version None)
Quarter: 2010Q3

REPORT INFORMATION
  Report Type: 
  Country: None (occurrence: None)
  Receive Date: 20100830
  Receipt Date: 20100819
  Transmission Date: 20110219
  Serious: Yes (Hospitalization, Other)
  Sender: FDA-Public Use
  Company Number: US-AMGEN-QUU430325

PATIENT
  Sex: Female

DRUGS (5)
  1. NEULASTA [Suspect]
     Indication: CHEMOTHERAPY
     Route: 065
     Dates: start: 20100421
  2. CYTOXAN [Concomitant]
  3. METHOTREXATE [Concomitant]
  4. FLUOROURACIL [Concomitant]
  5. ADRIAMYCIN PFS [Concomitant]
     Route: 042

REACTIONS (2)
  - FEBRILE NEUTROPENIA [None]
  - NEUTROPENIA [None]
